FAERS Safety Report 5144994-8 (Version None)
Quarter: 2006Q4

REPORT INFORMATION
  Report Type: 
  Country: None (occurrence: None)
  Receive Date: 20061031
  Receipt Date: 20061017
  Transmission Date: 20070319
  Serious: Yes (Hospitalization)
  Sender: FDA-Public Use
  Company Number: FABR-11636

PATIENT
  Age: 34 Year
  Sex: Female
  Weight: 100.5 kg

DRUGS (1)
  1. FABRAZYME [Suspect]
     Indication: FABRY'S DISEASE
     Dosage: 100 MG Q2WKS IV
     Route: 042
     Dates: start: 20051205

REACTIONS (3)
  - DEVICE BREAKAGE [None]
  - DEVICE MIGRATION [None]
  - PALPITATIONS [None]
